FAERS Safety Report 15013202 (Version 2)
Quarter: 2018Q4

REPORT INFORMATION
  Report Type: Spontaneous
  Country: US (occurrence: US)
  Receive Date: 20180614
  Receipt Date: 20181029
  Transmission Date: 20190204
  Serious: No
  Sender: FDA-Public Use
  Company Number: US-PFIZER INC-2018237680

PATIENT
  Age: 43 Year
  Sex: Female

DRUGS (1)
  1. CHANTIX [Suspect]
     Active Substance: VARENICLINE TARTRATE
     Indication: SMOKING CESSATION THERAPY
     Dosage: 1 MG, 2X/DAY
     Route: 048
     Dates: start: 201711

REACTIONS (7)
  - Crying [Unknown]
  - Nausea [Unknown]
  - Hepatic pain [Unknown]
  - Product dose omission [Unknown]
  - Vomiting [Unknown]
  - Nightmare [Unknown]
  - Anger [Unknown]

NARRATIVE: CASE EVENT DATE: 201711
